FAERS Safety Report 25849639 (Version 1)
Quarter: 2025Q3

REPORT INFORMATION
  Report Type: Spontaneous
  Country: US (occurrence: US)
  Receive Date: 20250926
  Receipt Date: 20250926
  Transmission Date: 20251020
  Serious: Yes (Other)
  Sender: ABBVIE
  Company Number: US-ABBVIE-6474787

PATIENT
  Age: 29 Year
  Sex: Female
  Weight: 68 kg

DRUGS (5)
  1. LEXAPRO [Suspect]
     Active Substance: ESCITALOPRAM OXALATE
     Indication: Major depression
     Dosage: FORM STRENGTH: 10 MILLIGRAM
     Route: 048
     Dates: start: 202509, end: 202509
  2. LEXAPRO [Suspect]
     Active Substance: ESCITALOPRAM OXALATE
     Indication: Major depression
     Dosage: FORM STRENGTH: 20 MILLIGRAM
     Route: 048
     Dates: start: 20121024, end: 202509
  3. WELLBUTRIN [Suspect]
     Active Substance: BUPROPION HYDROCHLORIDE
     Indication: Depression
     Route: 065
     Dates: start: 2019
  4. TRINTELLIX [Concomitant]
     Active Substance: VORTIOXETINE HYDROBROMIDE
     Indication: Product used for unknown indication
  5. LEVOTHYROXINE [Concomitant]
     Active Substance: LEVOTHYROXINE
     Indication: Hypothyroidism

REACTIONS (11)
  - Hiatus hernia [Recovered/Resolved]
  - Migraine [Recovered/Resolved]
  - Gastrooesophageal reflux disease [Recovered/Resolved]
  - Depression [Recovered/Resolved]
  - Thyroid hormones increased [Not Recovered/Not Resolved]
  - Suicidal ideation [Recovered/Resolved]
  - Suicidal ideation [Not Recovered/Not Resolved]
  - Fatigue [Recovered/Resolved]
  - Therapeutic product effect decreased [Not Recovered/Not Resolved]
  - Weight increased [Recovering/Resolving]
  - Suicide attempt [Not Recovered/Not Resolved]

NARRATIVE: CASE EVENT DATE: 20121024
